FAERS Safety Report 12368948 (Version 2)
Quarter: 2016Q4

REPORT INFORMATION
  Report Type: Spontaneous
  Country: US (occurrence: US)
  Receive Date: 20160513
  Receipt Date: 20161108
  Transmission Date: 20170207
  Serious: No
  Sender: FDA-Public Use
  Company Number: US-CELGENEUS-USA-2016044253

PATIENT
  Sex: Female

DRUGS (7)
  1. THALOMID [Suspect]
     Active Substance: THALIDOMIDE
     Route: 048
     Dates: start: 200908
  2. THALOMID [Suspect]
     Active Substance: THALIDOMIDE
     Dosage: 150-200MG
     Route: 048
     Dates: start: 201210
  3. THALOMID [Suspect]
     Active Substance: THALIDOMIDE
     Route: 048
     Dates: start: 201008
  4. THALOMID [Suspect]
     Active Substance: THALIDOMIDE
     Route: 048
     Dates: start: 200909
  5. THALOMID [Suspect]
     Active Substance: THALIDOMIDE
     Route: 048
     Dates: start: 201501
  6. THALOMID [Suspect]
     Active Substance: THALIDOMIDE
     Indication: SYSTEMIC LUPUS ERYTHEMATOSUS
     Route: 048
     Dates: start: 200907
  7. THALOMID [Suspect]
     Active Substance: THALIDOMIDE
     Dosage: 100-200 MG
     Route: 048
     Dates: start: 201111

REACTIONS (1)
  - Malaise [Unknown]
